FAERS Safety Report 5583659-5 (Version None)
Quarter: 2008Q1

REPORT INFORMATION
  Report Type: 
  Country: None (occurrence: None)
  Receive Date: 20080107
  Receipt Date: 20071226
  Transmission Date: 20080703
  Serious: Yes (Hospitalization, Other)
  Sender: FDA-Public Use
  Company Number: KE-GILEAD-2007-0013680

PATIENT
  Sex: Female
  Weight: 58.8 kg

DRUGS (25)
  1. TRUVADA [Suspect]
     Indication: HIV INFECTION
     Route: 048
     Dates: start: 20071107
  2. TRUVADA [Suspect]
     Route: 048
     Dates: start: 20060929, end: 20071030
  3. LOPINAVIR AND RITONAVIR [Suspect]
     Indication: HIV INFECTION
     Route: 048
     Dates: start: 20061107
  4. NEVIRAPINE [Suspect]
     Indication: HIV INFECTION
     Route: 048
     Dates: start: 20061014, end: 20061030
  5. NEVIRAPINE [Suspect]
     Route: 048
     Dates: start: 20070929, end: 20071013
  6. VITACAP [Concomitant]
     Route: 065
  7. FLAGYL [Concomitant]
     Route: 048
     Dates: start: 20070904, end: 20070909
  8. FLAGYL [Concomitant]
     Route: 065
     Dates: start: 20070828, end: 20070903
  9. DIFLUCAN [Concomitant]
     Route: 065
     Dates: start: 20061026
  10. ZINNAT [Concomitant]
     Route: 065
     Dates: start: 20070904, end: 20070909
  11. ZINNAT [Concomitant]
     Route: 065
     Dates: start: 20061220, end: 20061230
  12. ZANTAC [Concomitant]
     Route: 065
     Dates: start: 20070326, end: 20070410
  13. ZANTAC [Concomitant]
     Route: 065
     Dates: start: 20070221, end: 20070307
  14. ZANTAC [Concomitant]
     Route: 065
     Dates: start: 20061222, end: 20070105
  15. CETRIZINE [Concomitant]
     Route: 065
     Dates: start: 20070116, end: 20070123
  16. SUPRAPEN [Concomitant]
     Route: 065
     Dates: start: 20070221, end: 20070228
  17. SUPRAPEN [Concomitant]
     Route: 065
     Dates: start: 20070129, end: 20070205
  18. MELOXICAM [Concomitant]
     Route: 065
     Dates: start: 20070129
  19. PASCALIUM [Concomitant]
     Route: 065
     Dates: start: 20070221, end: 20070307
  20. BETADINE [Concomitant]
     Route: 065
     Dates: start: 20070221, end: 20070307
  21. CANDID B CREAM [Concomitant]
     Route: 065
     Dates: start: 20070326, end: 20070410
  22. DEPO-PROVERA [Concomitant]
     Route: 065
     Dates: start: 20070326, end: 20070723
  23. CELESTAMINE TAB [Concomitant]
     Route: 065
     Dates: start: 20070528, end: 20070601
  24. AMOXIL [Concomitant]
     Route: 065
     Dates: start: 20070528, end: 20070601
  25. ZINACEF [Concomitant]
     Route: 065
     Dates: start: 20070828, end: 20070903

REACTIONS (5)
  - BEREAVEMENT [None]
  - CHORIOAMNIONITIS [None]
  - PREGNANCY [None]
  - PREMATURE LABOUR [None]
  - PREMATURE RUPTURE OF MEMBRANES [None]
